FAERS Safety Report 7026515-8 (Version None)
Quarter: 2010Q4

REPORT INFORMATION
  Report Type: 
  Country: None (occurrence: None)
  Receive Date: 20101004
  Receipt Date: 20100209
  Transmission Date: 20110411
  Serious: No
  Sender: FDA-Public Use
  Company Number: US-PFIZER INC-2010018018

PATIENT
  Sex: Female
  Weight: 74.8 kg

DRUGS (1)
  1. DEPO-ESTRADIOL [Suspect]
     Indication: OESTROGEN REPLACEMENT THERAPY
     Dosage: 1 CC INJECTION MONTHLY
     Route: 030
     Dates: start: 20090101, end: 20100101

REACTIONS (2)
  - DRUG INEFFECTIVE [None]
  - MENOPAUSAL SYMPTOMS [None]
